FAERS Safety Report 23492809 (Version 3)
Quarter: 2024Q1

REPORT INFORMATION
  Report Type: Spontaneous
  Country: US (occurrence: US)
  Receive Date: 20240207
  Receipt Date: 20240214
  Transmission Date: 20240410
  Serious: Yes (Other)
  Sender: FDA-Public Use
  Company Number: US-AMGEN-USASP2024025017

PATIENT
  Age: 87 Year
  Sex: Female

DRUGS (1)
  1. REPATHA [Suspect]
     Active Substance: EVOLOCUMAB
     Indication: Blood cholesterol abnormal
     Dosage: 420 MILLIGRAM, QMO
     Route: 058

REACTIONS (7)
  - Transient ischaemic attack [Recovering/Resolving]
  - Drug dose omission by device [Recovering/Resolving]
  - Dizziness [Recovering/Resolving]
  - Fall [Recovering/Resolving]
  - Product administered by wrong person [Recovering/Resolving]
  - Inappropriate schedule of product administration [Recovering/Resolving]
  - Device difficult to use [Recovering/Resolving]

NARRATIVE: CASE EVENT DATE: 20240101
